FAERS Safety Report 4771019-6 (Version None)
Quarter: 2005Q3

REPORT INFORMATION
  Report Type: 
  Country: None (occurrence: None)
  Receive Date: 20050914
  Receipt Date: 20050902
  Transmission Date: 20060218
  Serious: Yes (Hospitalization)
  Sender: FDA-Public Use
  Company Number: 216772

PATIENT

DRUGS (4)
  1. XOLAIR [Suspect]
     Indication: ASTHMA
     Dosage: 375 MG, 2/WEEKS, SUBCUTANEOUS
     Route: 058
     Dates: start: 20050601, end: 20050728
  2. BETA-2 AGONIST NOS (BETA-2 AGONIST NOS) [Concomitant]
  3. ORAL STEROIDS (STEROID NOS) [Concomitant]
  4. CORTICOSTEROID NOS (CORTICOSTEROID NOS) [Concomitant]

REACTIONS (2)
  - ASTHMA [None]
  - CONDITION AGGRAVATED [None]
